FAERS Safety Report 16261561 (Version 1)
Quarter: 2019Q2

REPORT INFORMATION
  Report Type: Spontaneous
  Country: US (occurrence: US)
  Receive Date: 20190327
  Receipt Date: 20190327
  Transmission Date: 20190711
  Serious: No
  Sender: FDA-Public Use
  Company Number: None

PATIENT
  Age: 30 Year
  Sex: Female

DRUGS (1)
  1. ENOXAPARIN SODIUM. [Suspect]
     Active Substance: ENOXAPARIN SODIUM
     Indication: PULMONARY EMBOLISM
     Route: 058
     Dates: start: 20190121

REACTIONS (5)
  - Gastric haemorrhage [None]
  - Exposure during pregnancy [None]
  - Haemorrhage [None]
  - Contusion [None]
  - Pregnancy [None]

NARRATIVE: CASE EVENT DATE: 201902
